FAERS Safety Report 4275127-8 (Version None)
Quarter: 2004Q1

REPORT INFORMATION
  Report Type: 
  Country: None (occurrence: None)
  Receive Date: 20040121
  Receipt Date: 20030908
  Transmission Date: 20041129
  Serious: Yes (Hospitalization)
  Sender: FDA-Public Use
  Company Number: JP-BRISTOL-MYERS SQUIBB COMPANY-12383071

PATIENT
  Age: 55 Year
  Sex: Male

DRUGS (4)
  1. EFAVIRENZ CAPS [Suspect]
     Indication: HIV INFECTION
     Route: 048
     Dates: start: 20030617, end: 20030905
  2. STAVUDINE [Suspect]
     Indication: HIV INFECTION
     Dosage: 22-SEP-1998 TO 05-SEP-2003, 16-SEP-2003 TO CONT.
     Dates: start: 19980922
  3. LAMIVUDINE [Suspect]
     Indication: HIV INFECTION
     Dosage: 22-SEP-1998 TO 05-SEP-2003, 16-SEP-2003 TO CONT.
     Dates: start: 19980922
  4. INDINAVIR SULFATE [Suspect]
     Indication: HIV INFECTION
     Route: 048

REACTIONS (3)
  - PHOTOSENSITIVE RASH [None]
  - RENAL IMPAIRMENT [None]
  - SEBORRHOEIC DERMATITIS [None]
